FAERS Safety Report 25281589 (Version 1)
Quarter: 2025Q2

REPORT INFORMATION
  Report Type: Spontaneous
  Country: CN (occurrence: CN)
  Receive Date: 20250508
  Receipt Date: 20250508
  Transmission Date: 20250717
  Serious: Yes (Life-Threatening, Hospitalization, Other)
  Sender: BAXTER
  Company Number: CN-BAXTER-2025BAX010536

PATIENT
  Age: 62 Year
  Sex: Male
  Weight: 69.7 kg

DRUGS (52)
  1. CYCLOPHOSPHAMIDE [Suspect]
     Active Substance: CYCLOPHOSPHAMIDE
     Indication: B-cell lymphoma
     Route: 041
     Dates: start: 20240911, end: 20240911
  2. CYCLOPHOSPHAMIDE [Suspect]
     Active Substance: CYCLOPHOSPHAMIDE
     Route: 041
     Dates: start: 20241009, end: 20241009
  3. CYCLOPHOSPHAMIDE [Suspect]
     Active Substance: CYCLOPHOSPHAMIDE
     Route: 041
     Dates: start: 20241030, end: 20241030
  4. CYCLOPHOSPHAMIDE [Suspect]
     Active Substance: CYCLOPHOSPHAMIDE
     Route: 041
     Dates: start: 20241120, end: 20241120
  5. CYCLOPHOSPHAMIDE [Suspect]
     Active Substance: CYCLOPHOSPHAMIDE
     Route: 041
     Dates: start: 20241211, end: 20241211
  6. CYCLOPHOSPHAMIDE [Suspect]
     Active Substance: CYCLOPHOSPHAMIDE
     Dosage: 705 MG, 3X A WEEK (Q3W), AS PART OF R-CHOP REGIMEN
     Route: 041
     Dates: start: 20250403, end: 20250403
  7. RITUXIMAB [Suspect]
     Active Substance: RITUXIMAB
     Indication: B-cell lymphoma
     Route: 041
     Dates: start: 20240910, end: 20240910
  8. RITUXIMAB [Suspect]
     Active Substance: RITUXIMAB
     Route: 041
     Dates: start: 20241009, end: 20241009
  9. RITUXIMAB [Suspect]
     Active Substance: RITUXIMAB
     Route: 041
     Dates: start: 20241030, end: 20241030
  10. RITUXIMAB [Suspect]
     Active Substance: RITUXIMAB
     Route: 041
     Dates: start: 20241120, end: 20241120
  11. RITUXIMAB [Suspect]
     Active Substance: RITUXIMAB
     Route: 041
     Dates: start: 20241211, end: 20241211
  12. RITUXIMAB [Suspect]
     Active Substance: RITUXIMAB
     Dosage: 705 MG, THREE TIMES IN A WEEK (Q3W), AS PART OF R-CHOP REGIMEN, 3XA WEEK
     Route: 041
     Dates: start: 20250403, end: 20250403
  13. RITUXIMAB [Suspect]
     Active Substance: RITUXIMAB
     Dosage: 701 MG, THREE TIMES IN A WEEK (Q3W), AS PART OF R-CHOP REGIMEN, 3X A WEEK
     Route: 041
     Dates: start: 20250424, end: 20250424
  14. DOXORUBICIN [Suspect]
     Active Substance: DOXORUBICIN
     Indication: B-cell lymphoma
     Route: 041
     Dates: start: 20240911, end: 20240911
  15. DOXORUBICIN [Suspect]
     Active Substance: DOXORUBICIN
     Route: 041
     Dates: start: 20241009, end: 20241009
  16. DOXORUBICIN [Suspect]
     Active Substance: DOXORUBICIN
     Route: 041
     Dates: start: 20241030, end: 20241030
  17. DOXORUBICIN [Suspect]
     Active Substance: DOXORUBICIN
     Route: 041
     Dates: start: 20241120, end: 20241120
  18. DOXORUBICIN [Suspect]
     Active Substance: DOXORUBICIN
     Route: 041
     Dates: start: 20241211, end: 20241211
  19. DOXORUBICIN [Suspect]
     Active Substance: DOXORUBICIN
     Route: 041
     Dates: start: 20250403, end: 20250403
  20. VINCRISTINE [Suspect]
     Active Substance: VINCRISTINE
     Indication: B-cell lymphoma
     Route: 041
     Dates: start: 20240911, end: 20240911
  21. VINCRISTINE [Suspect]
     Active Substance: VINCRISTINE
     Route: 041
     Dates: start: 20241009, end: 20241009
  22. VINCRISTINE [Suspect]
     Active Substance: VINCRISTINE
     Route: 041
     Dates: start: 20241030, end: 20241030
  23. VINCRISTINE [Suspect]
     Active Substance: VINCRISTINE
     Route: 041
     Dates: start: 20241120, end: 20241120
  24. VINCRISTINE [Suspect]
     Active Substance: VINCRISTINE
     Route: 041
     Dates: start: 20241211, end: 20241211
  25. VINCRISTINE [Suspect]
     Active Substance: VINCRISTINE
     Route: 041
     Dates: start: 20250403, end: 20250403
  26. PREDNISONE [Suspect]
     Active Substance: PREDNISONE
     Indication: B-cell lymphoma
     Route: 048
     Dates: start: 20240910, end: 20240914
  27. PREDNISONE [Suspect]
     Active Substance: PREDNISONE
     Route: 048
     Dates: start: 20241009, end: 20241013
  28. PREDNISONE [Suspect]
     Active Substance: PREDNISONE
     Route: 048
     Dates: start: 20241030, end: 20241103
  29. PREDNISONE [Suspect]
     Active Substance: PREDNISONE
     Route: 048
     Dates: start: 20241120, end: 20241124
  30. PREDNISONE [Suspect]
     Active Substance: PREDNISONE
     Route: 048
     Dates: start: 20241211, end: 20241215
  31. PREDNISONE [Suspect]
     Active Substance: PREDNISONE
     Dosage: 100 MG, QD, AS PART OF R-CHOP REGIMEN
     Route: 048
     Dates: start: 20250403, end: 20250407
  32. VALSARTAN [Concomitant]
     Active Substance: VALSARTAN
     Indication: Hypertension
     Dosage: 80 MG, QD, START DATE: FEB-2021, ONGOING
     Route: 048
     Dates: start: 202102
  33. AMLODIPINE BESYLATE [Concomitant]
     Active Substance: AMLODIPINE BESYLATE
     Indication: Hypertension
     Dosage: 5 MG, QD, START DATE: JAN-2020, ONGOING
     Route: 048
     Dates: start: 202001, end: 20250326
  34. SULFAMETHOXAZOLE [Concomitant]
     Active Substance: SULFAMETHOXAZOLE
     Indication: Infection prophylaxis
     Route: 048
     Dates: start: 20240916, end: 202501
  35. VITAMIN C [Concomitant]
     Active Substance: ASCORBIC ACID
     Indication: Nutritional supplementation
     Route: 041
     Dates: start: 20250102, end: 20250102
  36. MIDAZOLAM [Concomitant]
     Active Substance: MIDAZOLAM
     Indication: Tracheoscopy
     Route: 042
     Dates: start: 20250103, end: 20250103
  37. LIDOCAINE HYDROCHLORIDE [Concomitant]
     Active Substance: LIDOCAINE HYDROCHLORIDE
     Indication: Tracheoscopy
     Route: 065
     Dates: start: 20250103, end: 20250103
  38. LIDOCAINE HYDROCHLORIDE [Concomitant]
     Active Substance: LIDOCAINE HYDROCHLORIDE
     Indication: Local anaesthesia
  39. AMBROXOL HYDROCHLORIDE [Concomitant]
     Active Substance: AMBROXOL HYDROCHLORIDE
     Indication: Pneumonia
     Dosage: 30 MG, QD
     Route: 041
     Dates: start: 20250102, end: 20250115
  40. IPRATROPIUM BROMIDE [Concomitant]
     Active Substance: IPRATROPIUM BROMIDE
     Indication: Pneumonia
     Dosage: 2 ML, BID, AEROSOLIZATION
     Dates: start: 20250102, end: 20250109
  41. ACETYLCYSTEINE [Concomitant]
     Active Substance: ACETYLCYSTEINE
     Indication: Pneumonia
     Dosage: 0.3 G, BID, AEROSOLIZATION
     Dates: start: 20250102, end: 20250109
  42. OSELTAMIVIR PHOSPHATE [Concomitant]
     Active Substance: OSELTAMIVIR PHOSPHATE
     Indication: Pneumonia
     Dosage: 75 MG, BID
     Route: 048
     Dates: start: 20250102, end: 20250106
  43. OSELTAMIVIR PHOSPHATE [Concomitant]
     Active Substance: OSELTAMIVIR PHOSPHATE
     Dosage: 75 MG, BID
     Route: 048
     Dates: start: 20250111, end: 20250115
  44. OSELTAMIVIR PHOSPHATE [Concomitant]
     Active Substance: OSELTAMIVIR PHOSPHATE
     Route: 048
     Dates: start: 20250111, end: 20250111
  45. IMIPENEM AND CILASTATIN SODIUM [Concomitant]
     Active Substance: CILASTATIN SODIUM\IMIPENEM
     Indication: Pneumonia
     Route: 041
     Dates: start: 20250104, end: 20250114
  46. MONTELUKAST SODIUM [Concomitant]
     Active Substance: MONTELUKAST SODIUM
     Indication: Pneumonia
     Route: 048
     Dates: start: 20250102, end: 20250124
  47. Myrtol standardized enteric coated soft capsules (adults) [Concomitant]
     Indication: Pneumonia
     Dosage: 0.45 G, TID, PO
     Route: 048
     Dates: start: 20250102, end: 20250124
  48. CARBOCYSTEINE [Concomitant]
     Active Substance: CARBOCYSTEINE
     Indication: Pneumonia
     Dosage: 10 ML, TID, PO
     Route: 048
     Dates: start: 20250102, end: 20250117
  49. PIPERACILLIN AND TAZOBACTAM [Concomitant]
     Active Substance: PIPERACILLIN SODIUM\TAZOBACTAM SODIUM
     Indication: Pneumonia
     Route: 041
     Dates: start: 20250102, end: 20250102
  50. PIPERACILLIN AND TAZOBACTAM [Concomitant]
     Active Substance: PIPERACILLIN SODIUM\TAZOBACTAM SODIUM
     Route: 065
     Dates: start: 20250120
  51. IMIPENEM AND CILASTATIN SODIUM [Concomitant]
     Active Substance: CILASTATIN SODIUM\IMIPENEM
     Indication: Pneumonia
     Route: 041
     Dates: start: 20250103, end: 20250103
  52. IBUPROFEN [Concomitant]
     Active Substance: IBUPROFEN
     Indication: Pneumonia
     Dosage: 10 ML, QD
     Route: 048
     Dates: start: 20250103, end: 20250103

REACTIONS (16)
  - Muscle twitching [Recovered/Resolved]
  - Hypokalaemia [Unknown]
  - Adams-Stokes syndrome [Unknown]
  - Epilepsy [Unknown]
  - Loss of consciousness [Unknown]
  - Trismus [Unknown]
  - Cyanosis [Unknown]
  - Syncope [Unknown]
  - Cardiac arrest [Recovered/Resolved]
  - Pulse absent [Recovered/Resolved]
  - Pupillary reflex impaired [Recovered/Resolved]
  - Myelosuppression [Unknown]
  - Pneumonia bacterial [Unknown]
  - Pyrexia [Unknown]
  - Bruxism [Recovered/Resolved]
  - Decreased appetite [Unknown]

NARRATIVE: CASE EVENT DATE: 20250102
